FAERS Safety Report 9675931 (Version 1)
Quarter: 2013Q4

REPORT INFORMATION
  Report Type: Spontaneous
  Country: US (occurrence: None)
  Receive Date: 20131105
  Receipt Date: 20131105
  Transmission Date: 20140711
  Serious: Yes (Other)
  Sender: FDA-Public Use
  Company Number: ABR_01227_2013

PATIENT
  Age: 87 Year
  Sex: Male
  Weight: 83.46 kg

DRUGS (1)
  1. EDARBI [Suspect]
     Indication: HYPERTENSION
     Dosage: (40 MG QD ORAL)
     Route: 048
     Dates: start: 20131012

REACTIONS (5)
  - Dizziness [None]
  - Headache [None]
  - Blood pressure systolic increased [None]
  - Dry mouth [None]
  - Dysphonia [None]
